FAERS Safety Report 9791475 (Version 5)
Quarter: 2014Q1

REPORT INFORMATION
  Report Type: Report from Study
  Country: PH (occurrence: PH)
  Receive Date: 20140101
  Receipt Date: 20140305
  Transmission Date: 20141002
  Serious: Yes (Hospitalization)
  Sender: FDA-Public Use
  Company Number: PHHY2013PH152940

PATIENT
  Sex: Female

DRUGS (2)
  1. GLIVEC [Suspect]
     Dosage: UNK
     Dates: end: 20131130
  2. GLIVEC [Suspect]
     Dosage: UNK UKN, UNK
     Dates: start: 20131214

REACTIONS (4)
  - White blood cell count increased [Not Recovered/Not Resolved]
  - Pallor [Not Recovered/Not Resolved]
  - Waist circumference increased [Not Recovered/Not Resolved]
  - Drug ineffective [Not Recovered/Not Resolved]
